FAERS Safety Report 6310174-3 (Version None)
Quarter: 2009Q3

REPORT INFORMATION
  Report Type: 
  Country: None (occurrence: None)
  Receive Date: 20090814
  Receipt Date: 20090804
  Transmission Date: 20100115
  Serious: Yes (Hospitalization, Disabling)
  Sender: FDA-Public Use
  Company Number: PR-MERCK-0805USA02820

PATIENT
  Age: 67 Year
  Sex: Female

DRUGS (4)
  1. FOSAMAX [Suspect]
     Indication: OSTEOPOROSIS
     Route: 048
     Dates: start: 20000101, end: 20070101
  2. FOSAMAX [Suspect]
     Route: 048
     Dates: start: 20011219, end: 20060911
  3. NOVOLIN R [Concomitant]
     Route: 065
     Dates: start: 19990714, end: 20020110
  4. HUMULIN R [Concomitant]
     Route: 065
     Dates: start: 19990714, end: 20020110

REACTIONS (15)
  - ANXIETY [None]
  - CARDIOVASCULAR DISORDER [None]
  - DEPRESSION [None]
  - DIABETES MELLITUS [None]
  - DYSLIPIDAEMIA [None]
  - GASTROOESOPHAGEAL REFLUX DISEASE [None]
  - GINGIVAL BLEEDING [None]
  - GINGIVAL INFECTION [None]
  - IMPAIRED HEALING [None]
  - LOOSE TOOTH [None]
  - MYOSITIS [None]
  - NEPHROLITHIASIS [None]
  - OSTEONECROSIS [None]
  - RESORPTION BONE INCREASED [None]
  - VAGINAL INFECTION [None]
